FAERS Safety Report 4480469-7 (Version None)
Quarter: 2004Q4

REPORT INFORMATION
  Report Type: 
  Country: None (occurrence: None)
  Receive Date: 20041018
  Receipt Date: 20041004
  Transmission Date: 20050328
  Serious: Yes (Other)
  Sender: FDA-Public Use
  Company Number: 2004S1000228

PATIENT
  Age: 87 Year
  Sex: Female

DRUGS (5)
  1. CUBICIN [Suspect]
     Indication: MENTAL IMPAIRMENT
     Dosage: Q48H; IV
     Route: 042
  2. CUBICIN [Suspect]
     Indication: SEPTIC ARTHRITIS STAPHYLOCOCCAL
     Dosage: Q48H; IV
     Route: 042
  3. CUBICIN [Suspect]
     Indication: STAPHYLOCOCCAL BACTERAEMIA
     Dosage: Q48H; IV
     Route: 042
  4. VANCOMYCIN [Concomitant]
  5. GENTAMYCIN SULFATE [Concomitant]

REACTIONS (4)
  - EXTRADURAL ABSCESS [None]
  - PATHOGEN RESISTANCE [None]
  - STAPHYLOCOCCAL INFECTION [None]
  - UNDERDOSE [None]
